FAERS Safety Report 7231286-6 (Version None)
Quarter: 2011Q1

REPORT INFORMATION
  Report Type: 
  Country: None (occurrence: None)
  Receive Date: 20110118
  Receipt Date: 20110114
  Transmission Date: 20110831
  Serious: Yes (Other)
  Sender: FDA-Public Use
  Company Number: BR-ROCHE-753576

PATIENT
  Sex: Female
  Weight: 64 kg

DRUGS (10)
  1. PROZAC [Concomitant]
     Indication: DEPRESSION
     Dates: start: 20000101, end: 20000101
  2. HALDOL [Concomitant]
     Indication: MOOD SWINGS
     Dates: start: 19970101, end: 19990101
  3. RIVOTRIL [Suspect]
     Route: 065
     Dates: start: 20000101, end: 20101001
  4. RIVOTRIL [Suspect]
     Route: 065
     Dates: start: 20101227
  5. ANAFRANIL [Concomitant]
     Indication: DEPRESSION
     Dates: start: 20000101, end: 20000101
  6. DIPYRONE [Suspect]
     Dosage: ROUTE: ENDOVENOUS
     Route: 042
  7. RIVOTRIL [Suspect]
     Indication: PANIC DISORDER
     Dosage: CO-INDICATION: DEPRESSION
     Route: 065
     Dates: start: 19970101, end: 20000101
  8. FRONTAL [Concomitant]
     Indication: DEPRESSION
     Dates: start: 20000101, end: 20000101
  9. PHENERGAN [Concomitant]
     Dosage: INDICATION: TO COUNTER HALDOL EFFECT
     Dates: start: 19970101, end: 19990101
  10. LEXOTAN [Suspect]
     Indication: DEPRESSION
     Route: 065
     Dates: start: 20000101, end: 20000701

REACTIONS (8)
  - SOMNOLENCE [None]
  - HYPERSENSITIVITY [None]
  - AGGRESSION [None]
  - PANIC ATTACK [None]
  - RHINITIS [None]
  - INTERVERTEBRAL DISC PROTRUSION [None]
  - INSOMNIA [None]
  - PHARYNGITIS [None]
